FAERS Safety Report 13812712 (Version 2)
Quarter: 2017Q4

REPORT INFORMATION
  Report Type: Report from Study
  Country: None (occurrence: BR)
  Receive Date: 20170730
  Receipt Date: 20171116
  Transmission Date: 20180320
  Serious: Yes (Hospitalization)
  Sender: FDA-Public Use
  Company Number: BR-ABBVIE-17K-020-2053298-00

PATIENT
  Age: 31 Year
  Sex: Female
  Weight: 45 kg

DRUGS (6)
  1. HUMIRA [Suspect]
     Active Substance: ADALIMUMAB
     Indication: CROHN^S DISEASE
     Dosage: LOADING DOSE, WEEK 0
     Route: 058
     Dates: start: 20091002, end: 20091002
  2. HUMIRA [Suspect]
     Active Substance: ADALIMUMAB
     Dosage: LOADING DOSE, WEEK 1
     Route: 058
     Dates: start: 200910, end: 200910
  3. CARBAMAZEPINE. [Concomitant]
     Active Substance: CARBAMAZEPINE
     Indication: EPILEPSY
  4. PHENYTOIN. [Concomitant]
     Active Substance: PHENYTOIN
     Indication: EPILEPSY
  5. HUMIRA [Suspect]
     Active Substance: ADALIMUMAB
     Dosage: MAINTENANCE DOSE
     Route: 058
     Dates: start: 2009
  6. PHENOBARBITAL. [Concomitant]
     Active Substance: PHENOBARBITAL
     Indication: EPILEPSY

REACTIONS (5)
  - Dermatitis infected [Recovered/Resolved]
  - Skin wound [Unknown]
  - Dermatitis [Recovered/Resolved]
  - Dermatitis [Unknown]
  - Anaemia [Not Recovered/Not Resolved]

NARRATIVE: CASE EVENT DATE: 2017
